FAERS Safety Report 6360289-9 (Version None)
Quarter: 2009Q3

REPORT INFORMATION
  Report Type: 
  Country: None (occurrence: None)
  Receive Date: 20090917
  Receipt Date: 20090905
  Transmission Date: 20100115
  Serious: Yes (Other)
  Sender: FDA-Public Use
  Company Number: US-PFIZER INC-2009267626

PATIENT
  Age: 55 Year
  Sex: Female
  Weight: 58.967 kg

DRUGS (2)
  1. CHANTIX [Suspect]
     Indication: SMOKING CESSATION THERAPY
     Dosage: FREQUENCY: 2X/DAY,
     Dates: start: 20090401, end: 20090501
  2. VALIUM [Concomitant]

REACTIONS (1)
  - FIBRIN D DIMER INCREASED [None]
